FAERS Safety Report 5856313-X (Version None)
Quarter: 2008Q3

REPORT INFORMATION
  Report Type: 
  Country: None (occurrence: None)
  Receive Date: 20080821
  Receipt Date: 20080821
  Transmission Date: 20090109
  Serious: Yes (Other)
  Sender: FDA-Public Use
  Company Number: None

PATIENT
  Age: 30 Year
  Sex: Female
  Weight: 61.2356 kg

DRUGS (1)
  1. KADIAN [Suspect]
     Indication: INTERVERTEBRAL DISC DEGENERATION
     Dosage: 1  DAILY  PO
     Route: 048
     Dates: start: 20080615, end: 20080816

REACTIONS (2)
  - ACNE [None]
  - WEIGHT INCREASED [None]
